FAERS Safety Report 11719403 (Version 1)
Quarter: 2015Q4

REPORT INFORMATION
  Report Type: Spontaneous
  Country: US (occurrence: None)
  Receive Date: 20151109
  Receipt Date: 20151109
  Transmission Date: 20160304
  Serious: Yes (Life-Threatening, Hospitalization, Disabling)
  Sender: FDA-Public Use
  Company Number: None

PATIENT
  Age: 27 Year
  Sex: Male
  Weight: 175.09 kg

DRUGS (6)
  1. OMEPRAZOLE. [Concomitant]
     Active Substance: OMEPRAZOLE
  2. INVEGA [Suspect]
     Active Substance: PALIPERIDONE
     Indication: MENTAL DISORDER
     Dosage: TAKEN BY MOUTH
     Dates: start: 20110107, end: 20151106
  3. LORATADINE. [Concomitant]
     Active Substance: LORATADINE
  4. HYDROXYZINE [Concomitant]
     Active Substance: HYDROXYZINE\HYDROXYZINE HYDROCHLORIDE
  5. LISINOPRIL. [Concomitant]
     Active Substance: LISINOPRIL
  6. INVEGA [Concomitant]
     Active Substance: PALIPERIDONE

REACTIONS (11)
  - Dizziness [None]
  - Neuroleptic malignant syndrome [None]
  - Hypertension [None]
  - Fatigue [None]
  - Schizoaffective disorder [None]
  - Heart rate increased [None]
  - Syncope [None]
  - Vomiting [None]
  - Type 2 diabetes mellitus [None]
  - Hallucination [None]
  - Weight increased [None]

NARRATIVE: CASE EVENT DATE: 20120411
